FAERS Safety Report 10973220 (Version 1)
Quarter: 2015Q2

REPORT INFORMATION
  Report Type: Spontaneous
  Country: US (occurrence: US)
  Receive Date: 20150401
  Receipt Date: 20150401
  Transmission Date: 20150821
  Serious: Yes (Other)
  Sender: FDA-Public Use
  Company Number: US-HORIZON-VIM-0024-2015

PATIENT
  Age: 47 Year
  Sex: Male
  Weight: 126 kg

DRUGS (3)
  1. SOMA [Concomitant]
     Active Substance: CARISOPRODOL
  2. VIMOVO [Suspect]
     Active Substance: ESOMEPRAZOLE MAGNESIUM\NAPROXEN
     Indication: PAIN
     Dosage: USING VIMOVO SOMETIME IN THE LAST TWO WEEKS
  3. HYDROCODONE [Concomitant]
     Active Substance: HYDROCODONE

REACTIONS (8)
  - Cough [Unknown]
  - Oedema peripheral [Recovered/Resolved]
  - Vasculitis [Recovered/Resolved]
  - Palpitations [Recovered/Resolved]
  - Chest pain [Recovered/Resolved]
  - Pain in extremity [Recovered/Resolved]
  - Rash [Recovered/Resolved]
  - Dyspnoea [Recovered/Resolved]

NARRATIVE: CASE EVENT DATE: 20150201
